FAERS Safety Report 5298181-3 (Version None)
Quarter: 2007Q2

REPORT INFORMATION
  Report Type: 
  Country: None (occurrence: None)
  Receive Date: 20070416
  Receipt Date: 20070404
  Transmission Date: 20071010
  Serious: Yes (Hospitalization)
  Sender: FDA-Public Use
  Company Number: US-SHR-US-2007-003889

PATIENT
  Age: 44 Year
  Sex: Female
  Weight: 55 kg

DRUGS (5)
  1. BETASERON [Suspect]
     Indication: RELAPSING-REMITTING MULTIPLE SCLEROSIS
     Dosage: 8 MIU, EVERY 2D
     Route: 058
     Dates: start: 20011128, end: 20051010
  2. BETASERON [Suspect]
     Dosage: 8 MIU, EVERY 2D
     Route: 058
     Dates: start: 20051014
  3. NEXIUM [Concomitant]
  4. KLONOPIN [Concomitant]
  5. DETROL [Concomitant]

REACTIONS (5)
  - ABSCESS [None]
  - FAT NECROSIS [None]
  - INJECTION SITE DISCOLOURATION [None]
  - NECROSIS [None]
  - SKIN NECROSIS [None]
